FAERS Safety Report 7756908-2 (Version None)
Quarter: 2011Q3

REPORT INFORMATION
  Report Type: 
  Country: None (occurrence: None)
  Receive Date: 20110916
  Receipt Date: 20110913
  Transmission Date: 20111222
  Serious: Yes (Death, Hospitalization)
  Sender: FDA-Public Use
  Company Number: US-GLAXOSMITHKLINE-A0944452A

PATIENT
  Age: 72 Year
  Sex: Male

DRUGS (4)
  1. ARIXTRA [Suspect]
     Indication: PULMONARY THROMBOSIS
     Dosage: 7.5MG PER DAY
     Route: 058
     Dates: start: 20110101
  2. STEROIDS [Concomitant]
  3. PROTONIX [Concomitant]
  4. BLOOD PRESSURE MEDICATION [Concomitant]

REACTIONS (1)
  - METASTATIC MALIGNANT MELANOMA [None]
